FAERS Safety Report 9432899 (Version 1)
Quarter: 2013Q3

REPORT INFORMATION
  Report Type: Spontaneous
  Country: JP (occurrence: None)
  Receive Date: 20130729
  Receipt Date: 20130729
  Transmission Date: 20140515
  Serious: No
  Sender: FDA-Public Use
  Company Number: SYM-2013-06782

PATIENT
  Sex: Male

DRUGS (4)
  1. FLUOROURACIL [Suspect]
     Indication: OESOPHAGEAL CARCINOMA
  2. DOCETAXEL [Suspect]
     Indication: OESOPHAGEAL CARCINOMA
  3. NEDAPLATIN [Suspect]
     Indication: OESOPHAGEAL CARCINOMA
     Route: 041
  4. THERAPEUTIC RADIOPHARMACEUTICALS [Suspect]
     Indication: OESOPHAGEAL CARCINOMA

REACTIONS (1)
  - Leukopenia [None]
